FAERS Safety Report 21271839 (Version 2)
Quarter: 2022Q3

REPORT INFORMATION
  Report Type: Report from Study
  Country: US (occurrence: US)
  Receive Date: 20220830
  Receipt Date: 20220902
  Transmission Date: 20221027
  Serious: Yes (Hospitalization, Other)
  Sender: FDA-Public Use
  Company Number: US-ABBVIE-22K-163-4519739-00

PATIENT
  Age: 38 Year
  Sex: Female

DRUGS (3)
  1. HUMIRA [Suspect]
     Active Substance: ADALIMUMAB
     Indication: Hidradenitis
     Dosage: DAY 1
     Route: 058
     Dates: start: 20211027, end: 20211027
  2. HUMIRA [Suspect]
     Active Substance: ADALIMUMAB
     Dosage: DAY 15
     Route: 058
     Dates: start: 20211111, end: 20211111
  3. HUMIRA [Suspect]
     Active Substance: ADALIMUMAB
     Dosage: DAY 29
     Route: 058
     Dates: start: 20211210, end: 202208

REACTIONS (7)
  - Gallbladder disorder [Unknown]
  - Pancreatitis [Recovered/Resolved]
  - Self-consciousness [Unknown]
  - Hidradenitis [Unknown]
  - Hidradenitis [Unknown]
  - Pain of skin [Unknown]
  - Pruritus [Unknown]

NARRATIVE: CASE EVENT DATE: 20220823
